FAERS Safety Report 11716673 (Version 1)
Quarter: 2015Q4

REPORT INFORMATION
  Report Type: Spontaneous
  Country: US (occurrence: US)
  Receive Date: 20151109
  Receipt Date: 20151109
  Transmission Date: 20160304
  Serious: No
  Sender: FDA-Public Use
  Company Number: US-APOPHARMA USA, INC.-2013AP003308

PATIENT
  Age: 57 Year
  Sex: Female
  Weight: 58.97 kg

DRUGS (7)
  1. BUPROPION. [Concomitant]
     Active Substance: BUPROPION
  2. FERRIPROX [Suspect]
     Active Substance: DEFERIPRONE
     Indication: IRON METABOLISM DISORDER
     Route: 048
     Dates: start: 20120201, end: 201208
  3. AMILORIDE HCL/HCTZ [Concomitant]
  4. AMLODIPINE [Concomitant]
     Active Substance: AMLODIPINE BESYLATE
  5. SERTRALINE [Concomitant]
     Active Substance: SERTRALINE HYDROCHLORIDE
  6. FERRIPROX [Suspect]
     Active Substance: DEFERIPRONE
     Route: 048
     Dates: start: 201209, end: 20130115
  7. ZOLPIDEM [Concomitant]
     Active Substance: ZOLPIDEM\ZOLPIDEM TARTRATE

REACTIONS (3)
  - Pain in extremity [Recovering/Resolving]
  - Arthralgia [Unknown]
  - Asthenia [Unknown]

NARRATIVE: CASE EVENT DATE: 201203
